FAERS Safety Report 10016064 (Version 3)
Quarter: 2014Q3

REPORT INFORMATION
  Report Type: Report from Study
  Country: JP (occurrence: JP)
  Receive Date: 20140317
  Receipt Date: 20140916
  Transmission Date: 20150326
  Serious: Yes (Hospitalization)
  Sender: FDA-Public Use
  Company Number: JP-ABBVIE-13P-087-1094243-00

PATIENT
  Age: 31 Year
  Sex: Male
  Weight: 60 kg

DRUGS (5)
  1. HUMIRA [Suspect]
     Active Substance: ADALIMUMAB
     Dates: start: 20130424, end: 20130424
  2. PARENTERAL NUTRITION [Concomitant]
     Active Substance: AMINO ACIDS\DEXTROSE\ELECTROLYTES NOS
     Indication: ENTERAL NUTRITION
     Route: 048
     Dates: start: 20130405
  3. HUMIRA [Suspect]
     Active Substance: ADALIMUMAB
     Dates: end: 20130508
  4. HUMIRA [Suspect]
     Active Substance: ADALIMUMAB
     Indication: CROHN^S DISEASE
     Route: 058
     Dates: start: 20130409, end: 20130409
  5. MESALAZINE [Concomitant]
     Active Substance: MESALAMINE
     Indication: CROHN^S DISEASE
     Route: 048
     Dates: start: 20130409, end: 20130508

REACTIONS (4)
  - Myoglobin urine present [Unknown]
  - Blood creatine phosphokinase increased [Recovered/Resolved]
  - Malaise [Unknown]
  - Convulsion [Recovering/Resolving]

NARRATIVE: CASE EVENT DATE: 20130508
